FAERS Safety Report 14665872 (Version 2)
Quarter: 2018Q2

REPORT INFORMATION
  Report Type: Report from Study
  Country: None (occurrence: DO)
  Receive Date: 20180321
  Receipt Date: 20180409
  Transmission Date: 20180711
  Serious: Yes (Hospitalization)
  Sender: FDA-Public Use
  Company Number: DO-ABBVIE-18K-279-2296596-00

PATIENT
  Age: 45 Year
  Sex: Female

DRUGS (2)
  1. HUMIRA [Suspect]
     Active Substance: ADALIMUMAB
     Indication: RHEUMATOID ARTHRITIS
     Route: 058
     Dates: start: 20170711, end: 20180319
  2. PREDNISONE. [Concomitant]
     Active Substance: PREDNISONE
     Indication: PRODUCT USED FOR UNKNOWN INDICATION

REACTIONS (14)
  - Skin wound [Recovering/Resolving]
  - Laboratory test [Recovering/Resolving]
  - Fall [Recovering/Resolving]
  - Wound complication [Recovering/Resolving]
  - Depression [Not Recovered/Not Resolved]
  - Treatment noncompliance [Unknown]
  - Drug ineffective [Recovering/Resolving]
  - Gastritis [Recovered/Resolved]
  - Inflammatory pain [Recovering/Resolving]
  - Fall [Recovered/Resolved]
  - Arthralgia [Recovered/Resolved]
  - Dizziness [Recovering/Resolving]
  - Inflammation [Recovering/Resolving]
  - Pyrexia [Recovering/Resolving]

NARRATIVE: CASE EVENT DATE: 201707
